FAERS Safety Report 20201092 (Version 1)
Quarter: 2021Q4

REPORT INFORMATION
  Report Type: Spontaneous
  Country: US (occurrence: None)
  Receive Date: 20211217
  Receipt Date: 20211217
  Transmission Date: 20220303
  Serious: Yes (Hospitalization)
  Sender: FDA-Public Use
  Company Number: None

PATIENT
  Age: 51 Year
  Sex: Male
  Weight: 77.7 kg

DRUGS (1)
  1. REVLIMID [Suspect]
     Active Substance: LENALIDOMIDE
     Indication: Plasma cell myeloma
     Dosage: FREQUENCY : DAILY;?
     Route: 048
     Dates: start: 20211126

REACTIONS (6)
  - Pyrexia [None]
  - Chills [None]
  - Dyspnoea [None]
  - Diarrhoea [None]
  - Cough [None]
  - Therapy interrupted [None]

NARRATIVE: CASE EVENT DATE: 20211204
